FAERS Safety Report 9003494 (Version 2)
Quarter: 2013Q1

REPORT INFORMATION
  Report Type: Spontaneous
  Country: US (occurrence: US)
  Receive Date: 20130108
  Receipt Date: 20130124
  Transmission Date: 20140127
  Serious: Yes (Other)
  Sender: FDA-Public Use
  Company Number: US-GILEAD-2012-0063537

PATIENT
  Sex: Female

DRUGS (3)
  1. LETAIRIS [Suspect]
     Indication: PULMONARY ARTERIAL HYPERTENSION
     Dosage: 5 MG, QD
     Route: 048
     Dates: start: 20120202
  2. ADCIRCA [Concomitant]
  3. VENTAVIS [Concomitant]

REACTIONS (3)
  - Renal failure acute [Unknown]
  - Feeling abnormal [Unknown]
  - Hypotension [Unknown]
